FAERS Safety Report 9694473 (Version 1)
Quarter: 2013Q4

REPORT INFORMATION
  Report Type: Spontaneous
  Country: AU (occurrence: AU)
  Receive Date: 20131118
  Receipt Date: 20131118
  Transmission Date: 20140711
  Serious: Yes (Other)
  Sender: FDA-Public Use
  Company Number: AU-ABBVIE-13P-008-1157623-00

PATIENT
  Sex: Female

DRUGS (10)
  1. EPILIM [Suspect]
     Indication: PRODUCT USED FOR UNKNOWN INDICATION
  2. RULIDE [Suspect]
     Indication: PRODUCT USED FOR UNKNOWN INDICATION
  3. PRIMIDONE [Suspect]
     Indication: PRODUCT USED FOR UNKNOWN INDICATION
  4. HIPREX [Concomitant]
     Indication: PRODUCT USED FOR UNKNOWN INDICATION
  5. ASPIRIN [Concomitant]
     Indication: PRODUCT USED FOR UNKNOWN INDICATION
  6. CLOBAZAM [Concomitant]
     Indication: PRODUCT USED FOR UNKNOWN INDICATION
  7. HEPARIN SODIUM [Concomitant]
     Indication: PRODUCT USED FOR UNKNOWN INDICATION
  8. PILOCARPINE W/TIMOLOL MALEATE [Concomitant]
     Indication: PRODUCT USED FOR UNKNOWN INDICATION
  9. PANADOL [Concomitant]
     Indication: PRODUCT USED FOR UNKNOWN INDICATION
  10. PROPINE [Concomitant]
     Indication: PRODUCT USED FOR UNKNOWN INDICATION

REACTIONS (4)
  - Convulsion [Unknown]
  - Dysphagia [Unknown]
  - Drug interaction [Unknown]
  - Somnolence [Unknown]
